FAERS Safety Report 18743958 (Version 1)
Quarter: 2021Q1

REPORT INFORMATION
  Report Type: Spontaneous
  Country: US (occurrence: US)
  Receive Date: 20210115
  Receipt Date: 20210115
  Transmission Date: 20210419
  Serious: Yes (Death, Hospitalization)
  Sender: FDA-Public Use
  Company Number: US-JNJFOC-20210110089

PATIENT
  Age: 31 Year
  Sex: Male

DRUGS (2)
  1. PARACETAMOL [Suspect]
     Active Substance: ACETAMINOPHEN
     Indication: PRODUCT USED FOR UNKNOWN INDICATION
     Dosage: 100 TABLETS
     Route: 048
  2. FERROUS SULFATE. [Suspect]
     Active Substance: FERROUS SULFATE
     Indication: PRODUCT USED FOR UNKNOWN INDICATION
     Dosage: 100 TABLETS
     Route: 048

REACTIONS (8)
  - Ammonia increased [Fatal]
  - Vomiting [Fatal]
  - Acidosis [Fatal]
  - Acute hepatic failure [Fatal]
  - Haemodynamic instability [Fatal]
  - Blood creatinine increased [Fatal]
  - Abdominal pain [Fatal]
  - Intentional overdose [Fatal]
